FAERS Safety Report 4925816-4 (Version None)
Quarter: 2006Q1

REPORT INFORMATION
  Report Type: 
  Country: None (occurrence: None)
  Receive Date: 20060228
  Receipt Date: 20050325
  Transmission Date: 20060701
  Serious: No
  Sender: FDA-Public Use
  Company Number: US-GLAXOSMITHKLINE-A0551319A

PATIENT
  Age: 47 Year
  Sex: Female

DRUGS (11)
  1. LAMICTAL [Suspect]
     Indication: BIPOLAR DISORDER
     Dosage: 25MG PER DAY
     Route: 048
     Dates: start: 20050301, end: 20050311
  2. BENADRYL [Suspect]
     Indication: RASH
     Dosage: 2TAB SINGLE DOSE
     Route: 048
     Dates: start: 20050311, end: 20050311
  3. VALIUM [Concomitant]
  4. LABETALOL HCL [Concomitant]
  5. NORVASC [Concomitant]
  6. CATAPRES [Concomitant]
  7. DURAGESIC-100 [Concomitant]
  8. VICODIN [Concomitant]
  9. CONCERTA [Concomitant]
  10. ZANTAC [Concomitant]
  11. BENADRYL [Concomitant]

REACTIONS (3)
  - ERYTHEMA [None]
  - FEELING DRUNK [None]
  - RASH [None]
